FAERS Safety Report 14973555 (Version 1)
Quarter: 2018Q2

REPORT INFORMATION
  Report Type: Spontaneous
  Country: AU (occurrence: AU)
  Receive Date: 20180605
  Receipt Date: 20180605
  Transmission Date: 20180711
  Serious: Yes (Other)
  Sender: FDA-Public Use
  Company Number: AU-009507513-1806AUS000357

PATIENT
  Sex: Female

DRUGS (2)
  1. NOVASONE [Suspect]
     Active Substance: MOMETASONE FUROATE
     Dosage: UNK
     Route: 061
  2. CELESTONE [Suspect]
     Active Substance: BETAMETHASONE
     Dosage: UNK
     Route: 061

REACTIONS (1)
  - Steroid withdrawal syndrome [Unknown]
